FAERS Safety Report 5125238-X (Version None)
Quarter: 2006Q4

REPORT INFORMATION
  Report Type: 
  Country: None (occurrence: None)
  Receive Date: 20061006
  Receipt Date: 20061006
  Transmission Date: 20070319
  Serious: Yes (Hospitalization)
  Sender: FDA-Public Use
  Company Number: None

PATIENT
  Age: 52 Year
  Sex: Male

DRUGS (10)
  1. DICLOFENAC SODIUM [Suspect]
     Indication: PAIN
     Dosage: 75 MG BID
     Dates: start: 20060401
  2. COLCHICINE [Concomitant]
  3. METHADONE [Concomitant]
  4. VENLAFAXIINE HCL [Concomitant]
  5. QUETIAPINE [Concomitant]
  6. DIPHENHYDRAMINE HCL [Concomitant]
  7. SYNTHROID [Concomitant]
  8. METOPROLOL TARTRATE [Concomitant]
  9. ALLOPURINOL [Concomitant]
  10. THEOPHYLLINE [Concomitant]

REACTIONS (1)
  - RENAL FAILURE ACUTE [None]
